FAERS Safety Report 9997386 (Version 1)
Quarter: 2014Q1

REPORT INFORMATION
  Report Type: Spontaneous
  Country: US (occurrence: US)
  Receive Date: 20140311
  Receipt Date: 20140311
  Transmission Date: 20141002
  Serious: No
  Sender: FDA-Public Use
  Company Number: US-GLAXOSMITHKLINE-A1040372A

PATIENT
  Sex: Female

DRUGS (1)
  1. NICORETTE OTC 2MG [Suspect]

REACTIONS (1)
  - Hypoaesthesia oral [Not Recovered/Not Resolved]
